FAERS Safety Report 5819941-3 (Version None)
Quarter: 2008Q3

REPORT INFORMATION
  Report Type: 
  Country: None (occurrence: None)
  Receive Date: 20080717
  Receipt Date: 20080701
  Transmission Date: 20090109
  Serious: Yes (Hospitalization)
  Sender: FDA-Public Use
  Company Number: PAR_02214_2008

PATIENT
  Sex: Male
  Weight: 82.7 kg

DRUGS (6)
  1. QUETIAPINE FUMARATE [Suspect]
     Indication: SCHIZOPHRENIA
     Dosage: (400 MG 1X ORAL)
     Route: 048
     Dates: start: 20080416, end: 20080416
  2. SEROQUEL XR [Suspect]
     Indication: SCHIZOPHRENIA
     Dosage: (400 MG 1X ORAL)
     Route: 048
     Dates: start: 20080412, end: 20080412
  3. ATIVAN [Concomitant]
  4. ATIVAN [Concomitant]
  5. AMBIEN [Concomitant]
  6. TYLENOL (CAPLET) [Concomitant]

REACTIONS (24)
  - ACCIDENT [None]
  - AGGRESSION [None]
  - AGITATION [None]
  - ANXIETY [None]
  - BIPOLAR DISORDER [None]
  - CONDITION AGGRAVATED [None]
  - CONSTIPATION [None]
  - DRUG INEFFECTIVE [None]
  - DYSPEPSIA [None]
  - HALLUCINATION, AUDITORY [None]
  - HYPERGLYCAEMIA [None]
  - IRRITABILITY [None]
  - MOOD SWINGS [None]
  - OPIATES POSITIVE [None]
  - PAIN [None]
  - PSYCHOTIC DISORDER [None]
  - SCHIZOPHRENIA, PARANOID TYPE [None]
  - SKIN LACERATION [None]
  - SOMNOLENCE [None]
  - SPEECH DISORDER [None]
  - SUICIDAL IDEATION [None]
  - THINKING ABNORMAL [None]
  - TREATMENT NONCOMPLIANCE [None]
  - WHITE BLOOD CELL COUNT INCREASED [None]
